FAERS Safety Report 9471707 (Version 1)
Quarter: 2013Q3

REPORT INFORMATION
  Report Type: Spontaneous
  Country: JP (occurrence: None)
  Receive Date: 20130819
  Receipt Date: 20130819
  Transmission Date: 20140515
  Serious: Yes (Life-Threatening)
  Sender: FDA-Public Use
  Company Number: 2013P1002651

PATIENT
  Age: 52 Year
  Sex: Female

DRUGS (4)
  1. ZANTAC [Suspect]
     Indication: PREMEDICATION
     Route: 042
  2. DEXAMETHASONE (DECADRON) [Concomitant]
  3. DIPHENHYDRAMINE [Concomitant]
  4. 5-HT3 RECEPTOR ANTAGONIST [Concomitant]

REACTIONS (5)
  - Anaphylactic shock [None]
  - Blood pressure decreased [None]
  - Loss of consciousness [None]
  - Generalised oedema [None]
  - Cardio-respiratory arrest [None]
